FAERS Safety Report 4569529-X (Version None)
Quarter: 2005Q1

REPORT INFORMATION
  Report Type: 
  Country: None (occurrence: None)
  Receive Date: 20050201
  Receipt Date: 20050124
  Transmission Date: 20050727
  Serious: Yes (Death)
  Sender: FDA-Public Use
  Company Number: 2005AC00138

PATIENT
  Age: 54 Year
  Sex: Female

DRUGS (12)
  1. LIDOCAINE [Suspect]
     Indication: ANAESTHESIA
     Dosage: 2 ML ONCE ED
     Route: 008
  2. BUPIVACAINE [Suspect]
     Indication: ANAESTHESIA
     Dosage: 10 ML
  3. BUPIVACAINE [Suspect]
     Indication: POSTOPERATIVE ANALGESIA
     Dosage: 10 ML
  4. BUPIVACAINE [Suspect]
     Indication: ANAESTHESIA
     Dosage: 0.625 %
  5. BUPIVACAINE [Suspect]
     Indication: POSTOPERATIVE ANALGESIA
     Dosage: 0.625 %
  6. MORPHINE [Suspect]
     Indication: ANAESTHESIA
     Dosage: 10 ML
  7. MORPHINE [Suspect]
     Indication: POSTOPERATIVE ANALGESIA
     Dosage: 10 ML
  8. MORPHINE [Suspect]
     Indication: ANAESTHESIA
  9. MORPHINE [Suspect]
     Indication: POSTOPERATIVE ANALGESIA
  10. FENTANYL [Suspect]
     Indication: ANAESTHESIA
  11. THIOPENTONE [Suspect]
     Indication: ANAESTHESIA
  12. ATRACURIUM [Suspect]
     Indication: ANAESTHESIA

REACTIONS (10)
  - ANAESTHETIC COMPLICATION CARDIAC [None]
  - ANAESTHETIC COMPLICATION NEUROLOGICAL [None]
  - ANAESTHETIC COMPLICATION PULMONARY [None]
  - BRAIN HERNIATION [None]
  - BRAIN NEOPLASM [None]
  - CARDIAC ARREST [None]
  - LETHARGY [None]
  - LOSS OF CONSCIOUSNESS [None]
  - POST PROCEDURAL COMPLICATION [None]
  - RESPIRATORY ARREST [None]
